FAERS Safety Report 4517862-X (Version None)
Quarter: 2004Q4

REPORT INFORMATION
  Report Type: 
  Country: None (occurrence: None)
  Receive Date: 20041203
  Receipt Date: 20040714
  Transmission Date: 20050328
  Serious: No
  Sender: FDA-Public Use
  Company Number: US-BRISTOL-MYERS SQUIBB COMPANY-12641064

PATIENT
  Age: 38 Year
  Sex: Female
  Weight: 78 kg

DRUGS (9)
  1. EXCEDRIN ES TABS [Suspect]
     Indication: HEADACHE
     Dosage: DOSE TAKEN:  3 TABLETS AT A TIME, EVERY FEW HOURS , EVERY DAY, FOR A LONG TIME.
     Route: 048
     Dates: start: 20040701
  2. EXCEDRIN ES TABS [Suspect]
     Indication: BACK PAIN
     Dosage: DOSE TAKEN:  3 TABLETS AT A TIME, EVERY FEW HOURS , EVERY DAY, FOR A LONG TIME.
     Route: 048
     Dates: start: 20040701
  3. PROLIXIN [Suspect]
     Dosage: INJECTION
     Route: 051
  4. TOPAMAX [Concomitant]
  5. BEROCCA PLUS [Concomitant]
  6. ARTANE [Concomitant]
  7. TOPAMAX [Concomitant]
  8. KEPPRA [Concomitant]
  9. AMITRIPTYLINE HCL [Concomitant]
     Dosage: 25MG AT BEDTIME

REACTIONS (3)
  - FEELING ABNORMAL [None]
  - NERVOUSNESS [None]
  - PREGNANCY [None]
